FAERS Safety Report 5590218-7 (Version None)
Quarter: 2008Q1

REPORT INFORMATION
  Report Type: 
  Country: None (occurrence: None)
  Receive Date: 20080114
  Receipt Date: 20080109
  Transmission Date: 20080703
  Serious: Yes (Congenital Anomaly, Other)
  Sender: FDA-Public Use
  Company Number: AU-ASTRAZENECA-2008AP00228

PATIENT

DRUGS (3)
  1. MARCAINE [Suspect]
     Dosage: MOTHER RECIEVED 2.2ML
     Route: 037
     Dates: start: 20071231, end: 20071231
  2. MARCAINE [Suspect]
     Dosage: MOTHER RECEIVED 2.2ML DOSE REPEATED
     Route: 037
     Dates: start: 20071231, end: 20071231
  3. FENTANYL [Concomitant]
     Route: 065
     Dates: start: 20071231, end: 20071231

REACTIONS (3)
  - BRAIN INJURY [None]
  - DRUG EXPOSURE DURING PREGNANCY [None]
  - FLOPPY INFANT [None]
